FAERS Safety Report 24715790 (Version 2)
Quarter: 2024Q4

REPORT INFORMATION
  Report Type: Spontaneous
  Country: US (occurrence: US)
  Receive Date: 20241210
  Receipt Date: 20241227
  Transmission Date: 20250114
  Serious: Yes (Other)
  Sender: TEVA
  Company Number: US-TEVA-VS-3272142

PATIENT
  Age: 41 Year
  Sex: Male

DRUGS (3)
  1. MYCOPHENOLATE MOFETIL [Suspect]
     Active Substance: MYCOPHENOLATE MOFETIL
     Indication: Immunosuppressant drug therapy
     Route: 065
  2. TACROLIMUS [Suspect]
     Active Substance: TACROLIMUS
     Indication: Immunosuppressant drug therapy
     Route: 065
  3. IMMUNE GLOBULIN [Concomitant]
     Indication: Transplant rejection
     Dosage: IVIG
     Route: 042

REACTIONS (2)
  - Thrombotic microangiopathy [Recovering/Resolving]
  - Drug ineffective [Unknown]
